FAERS Safety Report 6754009-3 (Version None)
Quarter: 2010Q2

REPORT INFORMATION
  Report Type: 
  Country: None (occurrence: None)
  Receive Date: 20100603
  Receipt Date: 20100602
  Transmission Date: 20101027
  Serious: Yes (Death, Life-Threatening, Hospitalization)
  Sender: FDA-Public Use
  Company Number: B0657452A

PATIENT
  Sex: Male

DRUGS (5)
  1. ARIXTRA [Suspect]
     Indication: THROMBOSIS PROPHYLAXIS
     Route: 058
     Dates: start: 20090401, end: 20090702
  2. OXYCONTIN [Concomitant]
     Dosage: 40MG PER DAY
     Route: 048
     Dates: start: 20090501
  3. LYRICA [Concomitant]
     Dosage: 300MG PER DAY
     Route: 048
     Dates: start: 20090501
  4. DAFALGAN [Concomitant]
     Route: 048
  5. SOLUPRED [Concomitant]
     Dosage: 40MG PER DAY
     Route: 048

REACTIONS (11)
  - ADRENAL HAEMORRHAGE [None]
  - FIBRIN INCREASED [None]
  - FLANK PAIN [None]
  - HAEMATOCRIT DECREASED [None]
  - HAEMOGLOBIN DECREASED [None]
  - INCORRECT DRUG ADMINISTRATION DURATION [None]
  - PALLOR [None]
  - RED BLOOD CELL COUNT DECREASED [None]
  - SHOCK HAEMORRHAGIC [None]
  - VOMITING [None]
  - WHITE BLOOD CELL COUNT INCREASED [None]
